FAERS Safety Report 19971800 (Version 1)
Quarter: 2021Q4

REPORT INFORMATION
  Report Type: Spontaneous
  Country: US (occurrence: US)
  Receive Date: 20211020
  Receipt Date: 20211020
  Transmission Date: 20220303
  Serious: No
  Sender: FDA-Public Use
  Company Number: US-SA-SAC20211016000497

PATIENT
  Age: 54 Year
  Sex: Female

DRUGS (3)
  1. DUPIXENT [Suspect]
     Active Substance: DUPILUMAB
     Indication: Migraine
     Dosage: 2 DF, 1X
     Route: 058
  2. DUPIXENT [Suspect]
     Active Substance: DUPILUMAB
     Indication: Dermatitis
     Dosage: 300 MG, QOW
     Route: 058
     Dates: start: 20211001, end: 20211004
  3. DUPIXENT [Suspect]
     Active Substance: DUPILUMAB
     Indication: Asthma

REACTIONS (4)
  - Dry mouth [Unknown]
  - Constipation [Unknown]
  - Dry eye [Unknown]
  - Product use in unapproved indication [Unknown]

NARRATIVE: CASE EVENT DATE: 20211004
